FAERS Safety Report 24941145 (Version 1)
Quarter: 2025Q1

REPORT INFORMATION
  Report Type: Spontaneous
  Country: CA (occurrence: CA)
  Receive Date: 20250207
  Receipt Date: 20250207
  Transmission Date: 20250408
  Serious: Yes (Other)
  Sender: JOHNSON AND JOHNSON
  Company Number: CA-JNJFOC-20250192663

PATIENT
  Age: 23 Year
  Sex: Female
  Weight: 89.36 kg

DRUGS (1)
  1. CONCERTA [Suspect]
     Active Substance: METHYLPHENIDATE HYDROCHLORIDE
     Indication: Attention deficit hyperactivity disorder
     Route: 048

REACTIONS (3)
  - Affect lability [Recovering/Resolving]
  - Affective disorder [Recovering/Resolving]
  - Product substitution issue [Recovering/Resolving]
